FAERS Safety Report 4498363-4 (Version None)
Quarter: 2004Q4

REPORT INFORMATION
  Report Type: 
  Country: None (occurrence: None)
  Receive Date: 20041105
  Receipt Date: 20041012
  Transmission Date: 20050328
  Serious: Yes (Hospitalization)
  Sender: FDA-Public Use
  Company Number: 12734802

PATIENT
  Age: 57 Year
  Sex: Male

DRUGS (5)
  1. REVIA [Suspect]
     Indication: DRUG DEPENDENCE
     Dosage: 50 MILLIGRAM 1 DAY, ORAL
     Route: 048
     Dates: start: 20040906, end: 20040907
  2. IVADAL (ZOLPIDEM TARTRATE) [Suspect]
     Indication: SLEEP DISORDER
     Dosage: 10 MG 1 DAY, ORAL
     Route: 048
     Dates: start: 20040906, end: 20040907
  3. VOLTAREN [Suspect]
     Indication: PODAGRA
     Dosage: 100 MILLIGRA 1 DAY, ORAL
     Route: 048
     Dates: start: 20040816
  4. NEXIUM [Suspect]
     Indication: PROPHYLAXIS
     Dosage: 20 MILLIGRAM 1 DAY, ORAL
     Route: 048
     Dates: start: 20040824
  5. ALLOPURINOL [Suspect]
     Indication: HYPERURICAEMIA
     Dosage: 300 MILLIGRAM 1 DAY, ORAL
     Route: 048
     Dates: start: 20040817

REACTIONS (3)
  - VERTIGO [None]
  - VISUAL BRIGHTNESS [None]
  - VISUAL DISTURBANCE [None]
